FAERS Safety Report 10982921 (Version 1)
Quarter: 2015Q2

REPORT INFORMATION
  Report Type: Spontaneous
  Country: US (occurrence: None)
  Receive Date: 20150402
  Receipt Date: 20150402
  Transmission Date: 20150821
  Serious: No
  Sender: FDA-Public Use
  Company Number: None

PATIENT
  Age: 62 Year

DRUGS (7)
  1. VIT. E [Concomitant]
  2. HARVONI [Suspect]
     Active Substance: LEDIPASVIR\SOFOSBUVIR
  3. VIT. B12 [Concomitant]
  4. HARVONI [Suspect]
     Active Substance: LEDIPASVIR\SOFOSBUVIR
     Indication: HEPATITIS C
  5. VIT. B6 [Concomitant]
  6. VIT. C [Concomitant]
  7. VIT. D3 [Concomitant]

REACTIONS (3)
  - Vertigo [None]
  - Rash [None]
  - Dizziness [None]
